FAERS Safety Report 6052972-X (Version None)
Quarter: 2009Q1

REPORT INFORMATION
  Report Type: 
  Country: None (occurrence: None)
  Receive Date: 20090127
  Receipt Date: 20081028
  Transmission Date: 20090719
  Serious: No
  Sender: FDA-Public Use
  Company Number: US-ABBOTT-08P-163-0484616-00

PATIENT
  Sex: Male
  Weight: 76.726 kg

DRUGS (4)
  1. LUPRON DEPOT [Suspect]
     Indication: PROSTATE CANCER
     Route: 030
     Dates: start: 20081016
  2. SERETIDE [Concomitant]
     Indication: EMPHYSEMA
     Route: 055
  3. TIOTROPIUM BROMIDE [Concomitant]
     Indication: EMPHYSEMA
  4. SALBUTAMOL [Concomitant]
     Indication: EMPHYSEMA
     Route: 055

REACTIONS (4)
  - AGITATION [None]
  - HOT FLUSH [None]
  - HYPERHIDROSIS [None]
  - INJECTION SITE PAIN [None]
